FAERS Safety Report 4476391-2 (Version None)
Quarter: 2004Q4

REPORT INFORMATION
  Report Type: 
  Country: None (occurrence: None)
  Receive Date: 20041016
  Receipt Date: 20041005
  Transmission Date: 20050328
  Serious: Yes (Other)
  Sender: FDA-Public Use
  Company Number: US-MERCK-0410USA00779

PATIENT
  Age: 69 Year
  Sex: Female
  Weight: 69 kg

DRUGS (7)
  1. TYLENOL W/ CODEINE NO. 3 [Concomitant]
     Route: 065
  2. ASPIRIN [Concomitant]
     Route: 065
  3. COLACE [Concomitant]
     Route: 065
  4. PEPCID [Concomitant]
     Route: 065
  5. MAGNESIA [MILK OF] [Concomitant]
     Route: 065
  6. VIOXX [Suspect]
     Indication: PAIN
     Route: 048
     Dates: start: 20040428, end: 20040101
  7. AMBIEN [Concomitant]
     Route: 065

REACTIONS (1)
  - CEREBROVASCULAR ACCIDENT [None]
